FAERS Safety Report 7849840-7 (Version None)
Quarter: 2011Q4

REPORT INFORMATION
  Report Type: 
  Country: None (occurrence: None)
  Receive Date: 20111026
  Receipt Date: 20111018
  Transmission Date: 20120403
  Serious: Yes (Hospitalization)
  Sender: FDA-Public Use
  Company Number: FR-BAYER-2011-101369

PATIENT
  Age: 41 Year
  Sex: Male

DRUGS (5)
  1. NEXAVAR [Suspect]
     Indication: METASTASES TO LUNG
  2. ZOLMITRIPTAN [Suspect]
     Indication: MIGRAINE
     Dosage: 1 DF, ONCE
     Route: 048
     Dates: start: 20110830, end: 20110830
  3. TEMODAL [Concomitant]
     Indication: METASTASES TO LUNG
  4. NEXAVAR [Suspect]
     Indication: MALIGNANT MELANOMA OF SITES OTHER THAN SKIN
     Dosage: 400 MG, BID
     Route: 048
     Dates: start: 20110414, end: 20110814
  5. TEMODAL [Concomitant]
     Indication: MALIGNANT MELANOMA OF SITES OTHER THAN SKIN
     Dosage: 150 MG/M?, 5 IN 28 DAYS
     Dates: start: 20110414, end: 20110814

REACTIONS (2)
  - ISCHAEMIC STROKE [None]
  - VISUAL ACUITY REDUCED [None]
